FAERS Safety Report 16165350 (Version 1)
Quarter: 2019Q2

REPORT INFORMATION
  Report Type: Spontaneous
  Country: CN (occurrence: CN)
  Receive Date: 20190405
  Receipt Date: 20190405
  Transmission Date: 20190711
  Serious: Yes (Disabling)
  Sender: FDA-Public Use
  Company Number: CN-PFIZER INC-2019140388

PATIENT
  Age: 46 Year
  Sex: Female
  Weight: 53 kg

DRUGS (2)
  1. SPORANOX [Suspect]
     Active Substance: ITRACONAZOLE
     Indication: ANTIFUNGAL TREATMENT
     Dosage: 0.2 G, 2X/DAY
     Route: 048
     Dates: start: 20190301, end: 20190320
  2. LIPITOR [Suspect]
     Active Substance: ATORVASTATIN CALCIUM
     Indication: DYSLIPIDAEMIA
     Dosage: 20 MG, 1X/DAY
     Route: 048
     Dates: start: 20190123, end: 20190320

REACTIONS (5)
  - Tremor [Recovering/Resolving]
  - Blood potassium increased [Recovering/Resolving]
  - Liver injury [Recovering/Resolving]
  - Renal disorder [Recovering/Resolving]
  - Muscle fatigue [Recovering/Resolving]

NARRATIVE: CASE EVENT DATE: 20190125
